FAERS Safety Report 5809792-8 (Version None)
Quarter: 2008Q3

REPORT INFORMATION
  Report Type: 
  Country: None (occurrence: None)
  Receive Date: 20080715
  Receipt Date: 20080708
  Transmission Date: 20090109
  Serious: Yes (Other)
  Sender: FDA-Public Use
  Company Number: US-ASTRAZENECA-2007UW26523

PATIENT
  Sex: Female

DRUGS (1)
  1. ARIMIDEX [Suspect]
     Indication: BREAST CANCER
     Route: 048
     Dates: start: 19960101

REACTIONS (5)
  - ARTHRALGIA [None]
  - ARTHRITIS [None]
  - COMPRESSION FRACTURE [None]
  - ILL-DEFINED DISORDER [None]
  - OSTEOPOROSIS [None]
